FAERS Safety Report 7996105 (Version 2)
Quarter: 2015Q2

REPORT INFORMATION
  Report Type: Report from Study
  Country: US (occurrence: US)
  Receive Date: 20110617
  Receipt Date: 20150611
  Transmission Date: 20150821
  Serious: Yes (Life-Threatening, Hospitalization, Other)
  Sender: FDA-Public Use
  Company Number: US-ROCHE-782671

PATIENT
  Age: 68 Year
  Sex: Female

DRUGS (3)
  1. BEVACIZUMAB [Suspect]
     Active Substance: BEVACIZUMAB
     Indication: CERVIX CARCINOMA
     Dosage: OVER 30-90 MINUTES ON DAY 1 OF CYCLE.?(ONE CYCLE: 21 DAYS)
     Route: 042
  2. PACLITAXEL. [Suspect]
     Active Substance: PACLITAXEL
     Indication: CERVIX CARCINOMA
     Dosage: OVER 3 HRS ON DAY 1
     Route: 042
     Dates: start: 20090929
  3. CISPLATIN. [Suspect]
     Active Substance: CISPLATIN
     Indication: CERVIX CARCINOMA
     Dosage: ON DAY 1
     Route: 042
     Dates: start: 20090929

REACTIONS (6)
  - Leukoencephalopathy [Recovered/Resolved]
  - Confusional state [Unknown]
  - Nervous system disorder [Unknown]
  - Haemorrhage intracranial [Unknown]
  - Seizure [Unknown]
  - Enterococcal infection [Recovered/Resolved]

NARRATIVE: CASE EVENT DATE: 20110104
